FAERS Safety Report 6396135-7 (Version None)
Quarter: 2009Q4

REPORT INFORMATION
  Report Type: 
  Country: None (occurrence: None)
  Receive Date: 20091009
  Receipt Date: 20090930
  Transmission Date: 20100525
  Serious: Yes (Hospitalization)
  Sender: FDA-Public Use
  Company Number: US-MERCK-0910USA00514

PATIENT
  Age: 15 Year
  Sex: Female

DRUGS (4)
  1. PRINIVIL [Suspect]
     Indication: HYPERTENSION
     Route: 048
  2. INSULIN GLARGINE [Concomitant]
     Route: 065
  3. INSULIN LISPRO [Concomitant]
     Route: 065
  4. METFORMIN [Concomitant]
     Route: 065

REACTIONS (3)
  - HYPOTENSION [None]
  - ISCHAEMIC STROKE [None]
  - RENAL FAILURE ACUTE [None]
